FAERS Safety Report 6982355-7 (Version None)
Quarter: 2010Q3

REPORT INFORMATION
  Report Type: 
  Country: None (occurrence: None)
  Receive Date: 20100914
  Receipt Date: 20100120
  Transmission Date: 20110219
  Serious: No
  Sender: FDA-Public Use
  Company Number: US-PFIZER INC-2010007650

PATIENT
  Sex: Female
  Weight: 89.5 kg

DRUGS (12)
  1. LYRICA [Suspect]
     Dosage: UNK
     Route: 065
  2. ACETYLSALICYLIC ACID [Suspect]
     Indication: MYOCARDIAL INFARCTION
     Dosage: 325 MG, UNK
     Route: 048
     Dates: start: 20090101
  3. ACETYLSALICYLIC ACID [Suspect]
     Indication: STENT PLACEMENT
     Dosage: 81 MG, UNK
     Route: 048
     Dates: start: 20091029
  4. ACETYLSALICYLIC ACID [Suspect]
     Indication: CARDIAC DISORDER
  5. PLAVIX [Suspect]
     Indication: MYOCARDIAL INFARCTION
     Dosage: 75 MG, DAILY
     Route: 048
     Dates: start: 20091028
  6. PLAVIX [Suspect]
     Indication: STENT PLACEMENT
  7. PLAVIX [Suspect]
     Indication: ARTERIAL OCCLUSIVE DISEASE
  8. TRAMADOL HYDROCHLORIDE AND ACETAMINOPHEN [Suspect]
     Indication: BACK PAIN
     Dosage: UNK, AS NEEDED
     Dates: start: 20080101
  9. HYZAAR [Concomitant]
     Dosage: UNK
     Dates: start: 19980101
  10. ALLEGRA [Concomitant]
  11. PRAVASTATIN [Concomitant]
     Dosage: UNK
     Dates: start: 20091029
  12. COREG [Concomitant]
     Dosage: UNK
     Dates: start: 20091029

REACTIONS (1)
  - VISION BLURRED [None]
